FAERS Safety Report 5748642-5 (Version None)
Quarter: 2008Q2

REPORT INFORMATION
  Report Type: 
  Country: None (occurrence: None)
  Receive Date: 20080521
  Receipt Date: 20080515
  Transmission Date: 20081010
  Serious: Yes (Other)
  Sender: FDA-Public Use
  Company Number: WAES 0711USA00686

PATIENT
  Age: 56 Year
  Sex: Female

DRUGS (5)
  1. FOSAMAX [Suspect]
     Indication: OSTEOPOROSIS
     Dosage: 2.5 MG/DAILY/PO
     Route: 048
     Dates: start: 19930617, end: 19970330
  2. ASCORBIC ACID [Concomitant]
  3. CALCIUM [Concomitant]
  4. NIACIN [Concomitant]
  5. VITAMINS [Concomitant]

REACTIONS (37)
  - ABSCESS [None]
  - AMNESIA [None]
  - APICAL GRANULOMA [None]
  - BRONCHITIS [None]
  - BURNING SENSATION [None]
  - CELLULITIS [None]
  - DEMENTIA [None]
  - DENTAL CARIES [None]
  - EDENTULOUS [None]
  - EXFOLIATIVE RASH [None]
  - EXOSTOSIS [None]
  - FALL [None]
  - GINGIVITIS [None]
  - INFLAMMATION [None]
  - MENTAL DISORDER [None]
  - MYOSITIS [None]
  - ORAL DISORDER [None]
  - OSTEOMA [None]
  - OSTEOMYELITIS CHRONIC [None]
  - OSTEONECROSIS [None]
  - PAIN [None]
  - PARAESTHESIA [None]
  - PERIODONTAL DISEASE [None]
  - PERIODONTITIS [None]
  - PRURITUS [None]
  - RHINITIS [None]
  - SCAR [None]
  - SEBORRHOEA [None]
  - SIALOADENITIS [None]
  - SINUS DISORDER [None]
  - SOFT TISSUE INFECTION [None]
  - SWELLING FACE [None]
  - TEMPOROMANDIBULAR JOINT SYNDROME [None]
  - TOOTH ABSCESS [None]
  - TOOTH LOSS [None]
  - UMBILICAL HERNIA, OBSTRUCTIVE [None]
  - WRIST FRACTURE [None]
